FAERS Safety Report 11492390 (Version 1)
Quarter: 2015Q3

REPORT INFORMATION
  Report Type: Spontaneous
  Country: US (occurrence: US)
  Receive Date: 20150910
  Receipt Date: 20150910
  Transmission Date: 20151125
  Serious: Yes (Other)
  Sender: FDA-Public Use
  Company Number: US-CELGENE-USA-2015087139

PATIENT
  Age: 58 Year
  Sex: Female

DRUGS (4)
  1. OTEZLA [Suspect]
     Active Substance: APREMILAST
     Indication: PSORIATIC ARTHROPATHY
     Route: 048
  2. OTEZLA [Suspect]
     Active Substance: APREMILAST
     Indication: PSORIASIS
     Route: 048
  3. OTEZLA [Suspect]
     Active Substance: APREMILAST
     Route: 048
     Dates: start: 20150730
  4. CELEBREX [Concomitant]
     Active Substance: CELECOXIB
     Indication: PSORIATIC ARTHROPATHY
     Route: 065

REACTIONS (5)
  - Nausea [Recovered/Resolved]
  - Panic attack [Not Recovered/Not Resolved]
  - Headache [Not Recovered/Not Resolved]
  - Chest discomfort [Not Recovered/Not Resolved]
  - Pyrexia [Not Recovered/Not Resolved]

NARRATIVE: CASE EVENT DATE: 20150730
